FAERS Safety Report 25711954 (Version 3)
Quarter: 2025Q3

REPORT INFORMATION
  Report Type: Report from Study
  Country: CN (occurrence: CN)
  Receive Date: 20250821
  Receipt Date: 20250904
  Transmission Date: 20251020
  Serious: Yes (Other)
  Sender: PFIZER
  Company Number: CN-TAKEDA-2025TUS071775

PATIENT

DRUGS (5)
  1. BLINATUMOMAB [Suspect]
     Active Substance: BLINATUMOMAB
     Indication: Acute lymphocytic leukaemia
  2. BLINATUMOMAB [Suspect]
     Active Substance: BLINATUMOMAB
  3. BLINATUMOMAB [Suspect]
     Active Substance: BLINATUMOMAB
  4. BLINATUMOMAB [Suspect]
     Active Substance: BLINATUMOMAB
  5. BLINATUMOMAB [Suspect]
     Active Substance: BLINATUMOMAB

REACTIONS (5)
  - Neurotoxicity [Unknown]
  - Somnolence [Recovering/Resolving]
  - Bradycardia [Recovering/Resolving]
  - Fatigue [Recovering/Resolving]
  - Pyrexia [Recovering/Resolving]
